FAERS Safety Report 6826169-7 (Version None)
Quarter: 2010Q3

REPORT INFORMATION
  Report Type: 
  Country: None (occurrence: None)
  Receive Date: 20100709
  Receipt Date: 20100705
  Transmission Date: 20110219
  Serious: Yes (Death)
  Sender: FDA-Public Use
  Company Number: GB-ASTRAZENECA-2010SE25325

PATIENT
  Sex: Female

DRUGS (1)
  1. IRESSA [Suspect]
     Dosage: 2 TABLETS
     Route: 048
     Dates: start: 20100401

REACTIONS (2)
  - DEATH [None]
  - DECUBITUS ULCER [None]
